FAERS Safety Report 6303606-8 (Version None)
Quarter: 2009Q3

REPORT INFORMATION
  Report Type: 
  Country: None (occurrence: None)
  Receive Date: 20090810
  Receipt Date: 20090729
  Transmission Date: 20100115
  Serious: Yes (Hospitalization)
  Sender: FDA-Public Use
  Company Number: FR-SANOFI-SYNTHELABO-A02200901984

PATIENT
  Sex: Male
  Weight: 78 kg

DRUGS (10)
  1. OMIX [Concomitant]
     Route: 048
     Dates: start: 20090401
  2. TAHOR [Concomitant]
     Route: 048
     Dates: start: 20090401
  3. KARDEGIC [Concomitant]
     Route: 048
     Dates: start: 20090401
  4. HYPERIUM [Concomitant]
     Indication: DRUG USE FOR UNKNOWN INDICATION
     Route: 048
     Dates: start: 20090401
  5. ISOPTIN [Concomitant]
     Indication: DRUG USE FOR UNKNOWN INDICATION
     Route: 048
     Dates: start: 20090401
  6. EUPRESSYL [Concomitant]
     Indication: DRUG USE FOR UNKNOWN INDICATION
     Route: 048
     Dates: start: 20090401
  7. DURAGESIC-100 [Suspect]
     Dosage: 75 MCG /3 DAYS
     Route: 062
     Dates: start: 20090528, end: 20090528
  8. ERBITUX [Suspect]
     Indication: METASTASES TO PERITONEUM
     Route: 042
     Dates: start: 20090528, end: 20090528
  9. ELOXATIN [Suspect]
     Indication: METASTASES TO PERITONEUM
     Route: 042
     Dates: start: 20090528, end: 20090528
  10. FLUOROURACIL [Suspect]
     Indication: METASTASES TO PERITONEUM
     Route: 042
     Dates: start: 20090528, end: 20090528

REACTIONS (2)
  - COMA [None]
  - CONVULSION [None]
